FAERS Safety Report 13670575 (Version 4)
Quarter: 2017Q3

REPORT INFORMATION
  Report Type: Spontaneous
  Country: ES (occurrence: ES)
  Receive Date: 20170620
  Receipt Date: 20170814
  Transmission Date: 20171127
  Serious: Yes (Death, Other)
  Sender: FDA-Public Use
  Company Number: ES-BAYER-2017-111938

PATIENT
  Age: 55 Year
  Sex: Male

DRUGS (11)
  1. ADEMPAS [Suspect]
     Active Substance: RIOCIGUAT
     Indication: PULMONARY HYPERTENSION
     Dosage: 2.5 MG, Q8HR
     Route: 048
  2. DESFERIN [Concomitant]
     Dosage: 500 MG I.V 500 MG IN THE BREAKFAST OF THURSDAY
     Route: 042
  3. ADEMPAS [Suspect]
     Active Substance: RIOCIGUAT
     Indication: PULMONARY HYPERTENSION
     Dosage: UNK
     Dates: start: 20170401
  4. PANTOPRAZOLE [Concomitant]
     Active Substance: PANTOPRAZOLE
     Dosage: 40 MG, QD
     Route: 048
  5. OXYGEN. [Concomitant]
     Active Substance: OXYGEN
  6. ZOLPIDEM [Concomitant]
     Active Substance: ZOLPIDEM\ZOLPIDEM TARTRATE
     Dosage: 10 MG, QD
     Route: 048
  7. MOTILIUM [Concomitant]
     Active Substance: DOMPERIDONE
     Dosage: 10 MG BEFORE THE MEALS DAILY
  8. HIDROALTESONA [Concomitant]
     Dosage: 20 MG COMP ORAL IRG:09H-20MG 13H-10MG 20H-20MG
  9. SEGURIL [Concomitant]
     Active Substance: FUROSEMIDE
     Dosage: 40 MG ON BREAKFAST AND LUNCHTIME DAILY
  10. SINTROM [Concomitant]
     Active Substance: ACENOCOUMAROL
     Dosage: 4 MG, UNK
  11. TRANGOREX [Concomitant]
     Active Substance: AMIODARONE HYDROCHLORIDE
     Dosage: 200 MG, Q8HR

REACTIONS (3)
  - Plasma cell myeloma [Fatal]
  - Metastases to bone [Fatal]
  - General physical health deterioration [Unknown]
